FAERS Safety Report 10490497 (Version 3)
Quarter: 2015Q1

REPORT INFORMATION
  Report Type: Spontaneous
  Country: US (occurrence: US)
  Receive Date: 20141002
  Receipt Date: 20150304
  Transmission Date: 20150720
  Serious: Yes (Hospitalization, Other)
  Sender: FDA-Public Use
  Company Number: US-PFIZER INC-2014267954

PATIENT
  Age: 11 Year
  Sex: Male
  Weight: 83.9 kg

DRUGS (9)
  1. MYSOLINE [Suspect]
     Active Substance: PRIMIDONE
     Indication: EPILEPSY
     Dosage: UNK
     Dates: start: 19871001, end: 20040601
  2. ZONISAMIDE. [Concomitant]
     Active Substance: ZONISAMIDE
     Dosage: UNK
     Dates: start: 200512, end: 200602
  3. DILANTIN [Suspect]
     Active Substance: PHENYTOIN
     Indication: EPILEPSY
     Dosage: 300 MG, DAILY
     Dates: start: 19640607, end: 19640607
  4. PHENOBARBITAL. [Suspect]
     Active Substance: PHENOBARBITAL
     Indication: EPILEPSY
     Dosage: 64.8 MG, 1X/DAY (AT NIGHT)
     Dates: start: 20080601
  5. CARBAMAZEPINE. [Suspect]
     Active Substance: CARBAMAZEPINE
     Indication: EPILEPSY
     Dosage: 200 MG, 5X/DAY (2 IN THE MORNING, 3 AT NIGHT)
     Dates: start: 19640607
  6. PHENYTOIN SODIUM. [Suspect]
     Active Substance: PHENYTOIN SODIUM
     Indication: EPILEPSY
     Dosage: 300 MG, 1X/DAY
     Dates: start: 20050601, end: 20050628
  7. VALPROIC ACID. [Concomitant]
     Active Substance: VALPROIC ACID
     Dosage: UNK
     Dates: start: 1980
  8. DILANTIN [Suspect]
     Active Substance: PHENYTOIN
     Dosage: 200 MG, DAILY
     Dates: start: 19640608
  9. LAMICTAL [Concomitant]
     Active Substance: LAMOTRIGINE
     Dosage: UNK
     Dates: start: 200506, end: 200511

REACTIONS (3)
  - Fatigue [Recovered/Resolved]
  - Somnolence [Recovered/Resolved]
  - Drug ineffective [Recovered/Resolved]

NARRATIVE: CASE EVENT DATE: 19640607
